FAERS Safety Report 6261411-5 (Version None)
Quarter: 2009Q3

REPORT INFORMATION
  Report Type: 
  Country: None (occurrence: None)
  Receive Date: 20090709
  Receipt Date: 20090627
  Transmission Date: 20100115
  Serious: Yes (Hospitalization)
  Sender: FDA-Public Use
  Company Number: US-PFIZER INC-2009213518

PATIENT
  Sex: Female
  Weight: 95.274 kg

DRUGS (14)
  1. SUNITINIB MALATE [Suspect]
     Indication: COLORECTAL CANCER
     Dosage: 37.5 MG, 1X/DAY
     Route: 048
     Dates: start: 20081217, end: 20090429
  2. OXALIPLATIN [Suspect]
     Indication: COLORECTAL CANCER
     Dosage: 163 MG, EVERY 2 WEEKS
     Route: 042
     Dates: start: 20081217
  3. FLUOROURACIL [Suspect]
     Indication: COLORECTAL CANCER
     Dosage: 768 MG, EVERY 2 WEEKS
     Route: 040
     Dates: start: 20081217
  4. FLUOROURACIL [Suspect]
     Dosage: 4600 MG, EVERY 2 WEEKS
     Route: 041
     Dates: start: 20081217
  5. CALCIUM FOLINATE [Suspect]
     Indication: COLORECTAL CANCER
     Dosage: 768 MG, EVERY 2 WEEKS
     Route: 042
     Dates: start: 20081217
  6. LISINOPRIL [Suspect]
     Indication: HYPERTENSION
     Dosage: 20 MG, 1X/DAY
     Dates: start: 20080801
  7. LISINOPRIL AND HYDROCHLOROTHIAZIDE [Concomitant]
     Indication: HYPERTENSION
     Dosage: 20 MG, 1X/DAY
     Dates: start: 20080801
  8. TRAMADOL [Concomitant]
     Indication: ARTHRITIS
     Dosage: 50 MG, AS NEEDED
     Dates: start: 20080801
  9. PRAVASTATIN [Concomitant]
     Indication: HYPERCHOLESTEROLAEMIA
     Dosage: 40 MG, 1X/DAY
     Dates: start: 20080801
  10. METOPROLOL [Concomitant]
     Indication: CORONARY ARTERY DISEASE
     Dosage: 50 MG, 1X/DAY
     Dates: start: 20080801
  11. RESTORIL [Concomitant]
     Indication: INSOMNIA
     Dosage: 15 MG, QHS
     Dates: start: 20081105
  12. COMPAZINE [Concomitant]
     Indication: NAUSEA
     Dosage: 10 MG, AS NEEDED
     Dates: start: 20081230
  13. ZOFRAN [Concomitant]
     Indication: NAUSEA
     Dosage: 8 MG, PRN / Q8H
     Dates: start: 20090101
  14. PRILOSEC [Concomitant]
     Indication: REFLUX OESOPHAGITIS
     Dosage: 20 MG, 1X/DAY
     Dates: start: 20090128

REACTIONS (1)
  - ANGIOEDEMA [None]
